FAERS Safety Report 4668540-8 (Version None)
Quarter: 2005Q2

REPORT INFORMATION
  Report Type: 
  Country: None (occurrence: None)
  Receive Date: 20050519
  Receipt Date: 20050411
  Transmission Date: 20051028
  Serious: Yes (Other)
  Sender: FDA-Public Use
  Company Number: 10789

PATIENT
  Age: 84 Year
  Sex: Female

DRUGS (13)
  1. DOPAMINE HCL [Suspect]
     Indication: HYPOTENSION
     Dosage: 10 MICROGRAM Q1HR INJ
  2. ATROPINE [Concomitant]
  3. DILTIAZEM [Concomitant]
  4. ASPIRIN [Concomitant]
  5. ATENOLOL [Concomitant]
  6. FENTANYL [Concomitant]
  7. FERROUS SULFATE TAB [Concomitant]
  8. ALENDRONATE SODIUM [Concomitant]
  9. L-THYROXINE [Concomitant]
  10. LISINOPRIL [Concomitant]
  11. CONJUGATED OESTROGEN [Concomitant]
  12. PANTOPRAZOLE SODIUM [Concomitant]
  13. MIRTAZAPINE [Concomitant]

REACTIONS (3)
  - CHOREOATHETOSIS [None]
  - COMPUTERISED TOMOGRAM ABNORMAL [None]
  - CONFUSIONAL STATE [None]
